FAERS Safety Report 19419155 (Version 1)
Quarter: 2021Q2

REPORT INFORMATION
  Report Type: Other
  Country: US (occurrence: US)
  Receive Date: 20210615
  Receipt Date: 20210615
  Transmission Date: 20210717
  Serious: Yes (Death)
  Sender: FDA-Public Use
  Company Number: US-ROCHE-2841312

PATIENT

DRUGS (11)
  1. IFOSFAMIDE. [Suspect]
     Active Substance: IFOSFAMIDE
     Indication: MANTLE CELL LYMPHOMA
     Dosage: 1.5 GRAMS/M^2 IV ON DAYS 1 THROUGH 5 OF CYCLES 2 AND 4
     Route: 042
  2. LEUCOVORIN. [Suspect]
     Active Substance: LEUCOVORIN
     Indication: MANTLE CELL LYMPHOMA
     Dosage: 100 MG/M^2 IV BEGINNING 36 (+/?4) HOURS AFTER START OF METHOTREXATE INFUSION, AND THEN 10 MG/M^2 AT
     Route: 042
  3. MESNA. [Suspect]
     Active Substance: MESNA
     Indication: MANTLE CELL LYMPHOMA
     Dosage: 360 MG/M^2 IV ON DAYS 1 THROUGH 5 OF CYCLES 2 AND 4
     Route: 042
  4. RITUXIMAB. [Suspect]
     Active Substance: RITUXIMAB
     Indication: MANTLE CELL LYMPHOMA
     Dosage: RITUXIMAB 375 MG/M^2 INTRAVENOUSLY (IV) ON DAY 1 FOR 4 CYCLES
     Route: 042
  5. METHOTREXATE. [Suspect]
     Active Substance: METHOTREXATE
     Indication: MANTLE CELL LYMPHOMA
     Dosage: 1,200 MG/M^2 IN 250 ML D5W IV OVER 1 HOUR, FOLLOWED BY METHOTREXATE 3,000 MG/M^2 IN 1,000 ML D5W BY
     Route: 042
  6. DOXORUBICIN [Suspect]
     Active Substance: DOXORUBICIN
     Indication: MANTLE CELL LYMPHOMA
     Dosage: 45 MG/M^2 IV BOLUS DAY 1 OF CYCLES 1 AND 3
     Route: 040
  7. CYCLOPHOSPHAMIDE. [Suspect]
     Active Substance: CYCLOPHOSPHAMIDE
     Dosage: 200 MG/M^2 IV ON DAYS 2 THROUGH 5 OF CYCLES 1 AND 3,
     Route: 042
  8. CYCLOPHOSPHAMIDE. [Suspect]
     Active Substance: CYCLOPHOSPHAMIDE
     Indication: MANTLE CELL LYMPHOMA
     Dosage: 800 MG/M^2 IV ON DAY 1
     Route: 042
  9. ETOPOSIDE. [Suspect]
     Active Substance: ETOPOSIDE
     Indication: MANTLE CELL LYMPHOMA
     Dosage: 60 MG/M^2 IV ON DAYS 1 THROUGH 5 OF CYCLES 2 AND 4,
     Route: 042
  10. CYTARABINE. [Suspect]
     Active Substance: CYTARABINE
     Indication: MANTLE CELL LYMPHOMA
     Dosage: 2 GRAMS/M^2 IV ON DAYS 1 AND 2 OF CYCLES 2 AND 4
     Route: 042
  11. VINCRISTINE [Suspect]
     Active Substance: VINCRISTINE
     Indication: MANTLE CELL LYMPHOMA
     Dosage: 1.5 MG/M^2 IV PUSH (MAXIMUM OF 2 MG) ON DAYS 1 AND 8 OF CYCLES 1 AND 3
     Route: 042

REACTIONS (1)
  - COVID-19 pneumonia [Fatal]
